FAERS Safety Report 17813826 (Version 1)
Quarter: 2020Q2

REPORT INFORMATION
  Report Type: Spontaneous
  Country: CN (occurrence: CN)
  Receive Date: 20200521
  Receipt Date: 20200521
  Transmission Date: 20200714
  Serious: Yes (Other)
  Sender: FDA-Public Use
  Company Number: CN-PFIZER INC-2020201724

PATIENT
  Sex: Male

DRUGS (3)
  1. LORNOXICAM [Concomitant]
     Active Substance: LORNOXICAM
     Dosage: 8 MG, 1X/DAY
  2. SODIUM AESCINATE [Concomitant]
     Active Substance: SODIUM ESCINATE
  3. CELEBREX [Suspect]
     Active Substance: CELECOXIB
     Indication: PAIN
     Dosage: 200 MG, 1X/DAY
     Route: 048

REACTIONS (3)
  - Tachycardia [Unknown]
  - Syncope [Unknown]
  - Atrial fibrillation [Unknown]
